FAERS Safety Report 5367291-4 (Version None)
Quarter: 2007Q2

REPORT INFORMATION
  Report Type: 
  Country: None (occurrence: None)
  Receive Date: 20070622
  Receipt Date: 20070620
  Transmission Date: 20071010
  Serious: Yes (Disabling, Other)
  Sender: FDA-Public Use
  Company Number: BR-BRISTOL-MYERS SQUIBB COMPANY-13817937

PATIENT
  Age: 84 Year
  Sex: Male

DRUGS (2)
  1. TRIAMCINOLONE ACETONIDE [Suspect]
     Route: 031
  2. VERTEPORFIN [Concomitant]

REACTIONS (1)
  - EYE INFECTION TOXOPLASMAL [None]
